FAERS Safety Report 16388610 (Version 1)
Quarter: 2019Q2

REPORT INFORMATION
  Report Type: Spontaneous
  Country: US (occurrence: US)
  Receive Date: 20190429
  Receipt Date: 20190429
  Transmission Date: 20190711
  Serious: No
  Sender: FDA-Public Use
  Company Number: None

PATIENT
  Age: 70 Year
  Sex: Male

DRUGS (2)
  1. RIBAVIRIN TAB [Suspect]
     Active Substance: RIBAVIRIN
     Indication: HEPATITIS C
     Route: 048
     Dates: start: 201903
  2. RIBAVIRIN TAB [Suspect]
     Active Substance: RIBAVIRIN
     Indication: HEPATITIS VIRAL
     Route: 048
     Dates: start: 201903

REACTIONS (2)
  - Anaemia [None]
  - Muscular weakness [None]

NARRATIVE: CASE EVENT DATE: 20190415
